FAERS Safety Report 5052458-5 (Version None)
Quarter: 2006Q3

REPORT INFORMATION
  Report Type: 
  Country: None (occurrence: None)
  Receive Date: 20060717
  Receipt Date: 20060425
  Transmission Date: 20061208
  Serious: No
  Sender: FDA-Public Use
  Company Number: US-BRISTOL-MYERS SQUIBB COMPANY-13356522

PATIENT

DRUGS (1)
  1. ESTRACE [Suspect]
     Dosage: DOSAGE FORM = 1-2 MG A DAY
     Dates: start: 19930101

REACTIONS (5)
  - DRY MOUTH [None]
  - GENERALISED OEDEMA [None]
  - LETHARGY [None]
  - PERFORMANCE STATUS DECREASED [None]
  - THINKING ABNORMAL [None]
